FAERS Safety Report 8905346 (Version 1)
Quarter: 2012Q4

REPORT INFORMATION
  Report Type: 
  Country: US (occurrence: US)
  Receive Date: 20121109
  Receipt Date: 20121109
  Transmission Date: 20130627
  Serious: No
  Sender: FDA-Public Use
  Company Number: US-009507513-1211USA002059

PATIENT
  Sex: Female

DRUGS (7)
  1. SINGULAIR [Suspect]
     Indication: ASTHMA
     Dosage: 10 mg, UNK
     Route: 048
     Dates: start: 201210
  2. WELLBUTRIN [Concomitant]
  3. PRILOSEC [Concomitant]
  4. ALVESCO [Concomitant]
  5. EPINASTINE [Concomitant]
  6. LEVOCETIRIZINE [Concomitant]
  7. XOPENEX HFA [Concomitant]

REACTIONS (1)
  - Joint instability [Recovered/Resolved]
